FAERS Safety Report 6754371-1 (Version None)
Quarter: 2010Q2

REPORT INFORMATION
  Report Type: 
  Country: None (occurrence: None)
  Receive Date: 20100520
  Receipt Date: 20090916
  Transmission Date: 20101027
  Serious: Yes (Other)
  Sender: FDA-Public Use
  Company Number: 2009207501

PATIENT
  Age: 48 Year
  Sex: Female
  Weight: 81.6 kg

DRUGS (3)
  1. PROVERA [Suspect]
     Indication: HORMONE REPLACEMENT THERAPY
     Dosage: 10 MG
     Dates: start: 19800901, end: 19901201
  2. PREMARIN [Suspect]
     Indication: HORMONE REPLACEMENT THERAPY
     Dosage: 0.625 MG
     Dates: start: 19800901, end: 19901201
  3. ACCUPRIL [Concomitant]

REACTIONS (2)
  - BREAST CANCER FEMALE [None]
  - ENDOMETRIAL CANCER [None]
